FAERS Safety Report 13175697 (Version 1)
Quarter: 2017Q1

REPORT INFORMATION
  Report Type: Spontaneous
  Country: US (occurrence: US)
  Receive Date: 20170131
  Receipt Date: 20170131
  Transmission Date: 20170428
  Serious: Yes (Death)
  Sender: FDA-Public Use
  Company Number: None

PATIENT
  Age: 68 Year
  Sex: Male

DRUGS (5)
  1. ANAGRELIDE HCL [Suspect]
     Active Substance: ANAGRELIDE HYDROCHLORIDE
     Indication: POLYCYTHAEMIA VERA
     Route: 048
  2. METOPRPLOL TARTRATE [Concomitant]
  3. HYDROUCHLOROTHIAZIDE [Concomitant]
  4. AMLODIPINE BESYLATE. [Concomitant]
     Active Substance: AMLODIPINE BESYLATE
  5. MOTRIN [Concomitant]
     Active Substance: IBUPROFEN

REACTIONS (1)
  - Death [None]
